FAERS Safety Report 5277514-8 (Version None)
Quarter: 2007Q1

REPORT INFORMATION
  Report Type: 
  Country: None (occurrence: None)
  Receive Date: 20070327
  Receipt Date: 20070316
  Transmission Date: 20070707
  Serious: Yes (Other)
  Sender: FDA-Public Use
  Company Number: GB-ROCHE-484828

PATIENT
  Age: 46 Year
  Sex: Male
  Weight: 156 kg

DRUGS (17)
  1. XENICAL [Suspect]
     Indication: OBESITY
     Route: 048
     Dates: start: 20021115, end: 20050515
  2. XENICAL [Suspect]
     Route: 048
     Dates: start: 20061120
  3. WARFARIN SODIUM [Concomitant]
  4. WARFARIN SODIUM [Concomitant]
  5. FUROSEMIDE [Concomitant]
  6. ASPIRIN [Concomitant]
  7. ATORVASTATIN CALCIUM [Concomitant]
  8. BISOPROLOL FUMARATE [Concomitant]
  9. RAMIPRIL [Concomitant]
  10. BISOPROLOL FUMARATE [Concomitant]
  11. ERYTHROMYCIN [Concomitant]
  12. GLYCERYL TRINITRATE [Concomitant]
  13. ISOSORBIDE MONONITRATE [Concomitant]
  14. ISOSORBIDE MONONITRATE [Concomitant]
  15. NICORANDIL [Concomitant]
  16. NICORANDIL [Concomitant]
  17. LANSOPRAZOLE [Concomitant]

REACTIONS (1)
  - INTERNATIONAL NORMALISED RATIO INCREASED [None]
